FAERS Safety Report 5876128-6 (Version None)
Quarter: 2008Q3

REPORT INFORMATION
  Report Type: 
  Country: None (occurrence: None)
  Receive Date: 20080910
  Receipt Date: 20080829
  Transmission Date: 20090109
  Serious: Yes (Death, Other)
  Sender: FDA-Public Use
  Company Number: CH-ROCHE-583847

PATIENT
  Age: 29 Year
  Sex: Male
  Weight: 70 kg

DRUGS (4)
  1. RIVOTRIL [Suspect]
     Indication: EPILEPSY
     Route: 042
     Dates: start: 20080508, end: 20080508
  2. EFFEXOR [Interacting]
     Indication: DRUG USE FOR UNKNOWN INDICATION
     Route: 048
     Dates: start: 20080507, end: 20080507
  3. PHENYTOIN [Interacting]
     Indication: EPILEPSY
     Route: 041
     Dates: start: 20080508, end: 20080508
  4. PROPOFOL [Interacting]
     Indication: EPILEPSY
     Route: 041
     Dates: start: 20080508, end: 20080508

REACTIONS (6)
  - COMA [None]
  - COMPLETED SUICIDE [None]
  - DRUG INTERACTION [None]
  - EPILEPSY [None]
  - HYPOTENSION [None]
  - VENTRICULAR FIBRILLATION [None]
